FAERS Safety Report 17413930 (Version 1)
Quarter: 2020Q1

REPORT INFORMATION
  Report Type: Report from Study
  Country: BR (occurrence: BR)
  Receive Date: 20200213
  Receipt Date: 20200213
  Transmission Date: 20200409
  Serious: Yes (Hospitalization)
  Sender: FDA-Public Use
  Company Number: BR-JNJFOC-20200206711

PATIENT
  Sex: Female

DRUGS (7)
  1. SELOZOK [Concomitant]
     Active Substance: METOPROLOL SUCCINATE
  2. CALCIO                             /00183801/ [Concomitant]
  3. SIMPONI [Suspect]
     Active Substance: GOLIMUMAB
     Indication: RHEUMATOID ARTHRITIS
     Route: 058
     Dates: start: 2019
  4. ACERTIL                            /00790703/ [Concomitant]
  5. PREDNISONE. [Concomitant]
     Active Substance: PREDNISONE
  6. OMEPRAZOLE. [Concomitant]
     Active Substance: OMEPRAZOLE
  7. AMITRIPTYLINE [Concomitant]
     Active Substance: AMITRIPTYLINE

REACTIONS (2)
  - Infection [Unknown]
  - Hypokinesia [Unknown]

NARRATIVE: CASE EVENT DATE: 2020
